FAERS Safety Report 5077775-4 (Version None)
Quarter: 2006Q3

REPORT INFORMATION
  Report Type: 
  Country: None (occurrence: None)
  Receive Date: 20060807
  Receipt Date: 20060727
  Transmission Date: 20061208
  Serious: Yes (Congenital Anomaly)
  Sender: FDA-Public Use
  Company Number: US200608000094

PATIENT
  Sex: 0

DRUGS (1)
  1. CYMBALTA [Suspect]
     Dosage: TRANSPLACENTAL
     Route: 064
     Dates: end: 20060401

REACTIONS (2)
  - ANENCEPHALY [None]
  - DRUG EXPOSURE DURING PREGNANCY [None]
